FAERS Safety Report 13678738 (Version 3)
Quarter: 2017Q2

REPORT INFORMATION
  Report Type: Spontaneous
  Country: CH (occurrence: CH)
  Receive Date: 20170622
  Receipt Date: 20170629
  Transmission Date: 20170830
  Serious: Yes (Life-Threatening)
  Sender: FDA-Public Use
  Company Number: CH-PFIZER INC-2017243267

PATIENT
  Age: 19 Day
  Sex: Male
  Weight: 4.7 kg

DRUGS (8)
  1. VISCOTEARS [Concomitant]
     Active Substance: CARBOMER
     Dosage: UNK
     Route: 047
  2. MORPHIN HCL SINTETICA [Suspect]
     Active Substance: MORPHINE HYDROCHLORIDE
     Indication: PAIN
     Dosage: 10 UG/KG/H (CONTINUOUS DRIP)
     Route: 042
  3. DAFALGAN [Suspect]
     Active Substance: ACETAMINOPHEN
     Indication: PAIN
     Dosage: 80 MG, 4X/DAY
     Route: 054
  4. VITAMIN D3 STREULI [Suspect]
     Active Substance: CHOLECALCIFEROL
     Dosage: UNK
     Route: 048
  5. NERVIFENE [Suspect]
     Active Substance: CHLORAL HYDRATE
     Dosage: UNK
     Route: 048
  6. KONAKION MM PAEDIATRIC [Concomitant]
     Indication: PROPHYLAXIS
     Dosage: 2 MG, UNK
     Route: 048
  7. LINEZOLID. [Suspect]
     Active Substance: LINEZOLID
     Indication: PNEUMONIA STAPHYLOCOCCAL
     Dosage: 40 MG, 3X/DAY
     Route: 042
     Dates: start: 20170524, end: 20170603
  8. VITAMIN A BLACHE /00056001/ [Concomitant]
     Dosage: UNK
     Route: 047

REACTIONS (14)
  - Lactic acidosis [Recovered/Resolved]
  - General physical health deterioration [Recovering/Resolving]
  - Diarrhoea [Unknown]
  - Hypertension [Unknown]
  - Drug administered to patient of inappropriate age [Unknown]
  - Thrombocytopenia [Unknown]
  - Malaise [Unknown]
  - Drug administration error [Unknown]
  - Dehydration [Recovering/Resolving]
  - Pneumothorax [Unknown]
  - Disease recurrence [Unknown]
  - Normochromic normocytic anaemia [Unknown]
  - Incorrect product storage [Unknown]
  - Serotonin syndrome [Unknown]

NARRATIVE: CASE EVENT DATE: 20170524
